FAERS Safety Report 7224772-6 (Version None)
Quarter: 2011Q1

REPORT INFORMATION
  Report Type: 
  Country: None (occurrence: None)
  Receive Date: 20110113
  Receipt Date: 20080225
  Transmission Date: 20110831
  Serious: No
  Sender: FDA-Public Use
  Company Number: US-PFIZER INC-US-WYE-H02821508

PATIENT
  Age: 61 Year
  Sex: Female
  Weight: 68 kg

DRUGS (2)
  1. CALCIUM [Concomitant]
  2. ADVIL COLD AND SINUS [Suspect]
     Dosage: 1 DF, 1X/DAY
     Route: 048
     Dates: start: 20080224, end: 20080224

REACTIONS (1)
  - ABDOMINAL PAIN UPPER [None]
